FAERS Safety Report 5809306-2 (Version None)
Quarter: 2008Q3

REPORT INFORMATION
  Report Type: 
  Country: None (occurrence: None)
  Receive Date: 20080714
  Receipt Date: 20071206
  Transmission Date: 20090109
  Serious: No
  Sender: FDA-Public Use
  Company Number: US-BOEHRINGER INGELHEIM GMBH, GERMANY-2007-BP-04425BP

PATIENT
  Sex: Male
  Weight: 44 kg

DRUGS (13)
  1. MIRAPEX [Suspect]
     Indication: PARKINSON'S DISEASE
     Dosage: BETWEEN  0.375MG TO 5.5 MG DAILY
     Dates: start: 20010426, end: 20061001
  2. CELEXA [Concomitant]
     Indication: DEPRESSION
     Dates: start: 20001001
  3. CARBIDOPA [Concomitant]
     Indication: PARKINSON'S DISEASE
     Dosage: 25/100
     Dates: start: 20001206
  4. CARBIDOPA AND LEVODOPA [Concomitant]
     Indication: PARKINSON'S DISEASE
     Dosage: 25/100 QID
     Dates: start: 19991004
  5. ALBUTEROL [Concomitant]
     Indication: ASTHMA
     Dates: start: 20001101
  6. ALBUTEROL [Concomitant]
     Indication: CHRONIC OBSTRUCTIVE PULMONARY DISEASE
  7. COMTAN [Concomitant]
     Indication: PARKINSON'S DISEASE
     Dates: start: 20000401
  8. SELEGILIN [Concomitant]
     Indication: PARKINSON'S DISEASE
     Dates: start: 20021220
  9. NICORETTE [Concomitant]
     Dosage: AS NEEDED
     Dates: start: 20020301, end: 20030201
  10. AEROBID [Concomitant]
     Dates: start: 20030107
  11. VIAGRA [Concomitant]
     Dosage: 50-100 MG
     Dates: start: 20020501
  12. FLEXERIL [Concomitant]
     Dosage: AS NEEDED
     Dates: start: 20040601
  13. ADVAIR DISKUS 100/50 [Concomitant]
     Dates: start: 20050101

REACTIONS (3)
  - COMPULSIVE SEXUAL BEHAVIOUR [None]
  - OBSESSIVE-COMPULSIVE DISORDER [None]
  - PATHOLOGICAL GAMBLING [None]
